FAERS Safety Report 12830162 (Version 1)
Quarter: 2016Q4

REPORT INFORMATION
  Report Type: Spontaneous
  Country: PT (occurrence: PT)
  Receive Date: 20161007
  Receipt Date: 20161007
  Transmission Date: 20170207
  Serious: Yes (Other)
  Sender: FDA-Public Use
  Company Number: PT-MYLANLABS-2016M1042956

PATIENT

DRUGS (9)
  1. VENLAFAXIN MYLAN 37,5 MG [Suspect]
     Active Substance: VENLAFAXINE HYDROCHLORIDE
     Dosage: 2 DF, QD
     Route: 048
  2. ARCOXIA [Concomitant]
     Active Substance: ETORICOXIB
     Indication: RHEUMATOID ARTHRITIS
     Dosage: 1 DF, QD
     Route: 065
  3. FOLICIL [Concomitant]
     Active Substance: FOLIC ACID
     Indication: PLANNING TO BECOME PREGNANT
     Dosage: 1 DF, QD
     Route: 065
  4. YODAFAR [Concomitant]
     Indication: PLANNING TO BECOME PREGNANT
     Dosage: 1 DF, QD
     Route: 065
  5. ANTISTAX                           /01364605/ [Concomitant]
     Indication: FATIGUE
     Dosage: 1 DF, QD
     Route: 065
  6. OMEPRAZOLE. [Concomitant]
     Active Substance: OMEPRAZOLE
     Indication: PROPHYLAXIS
     Dosage: 1 DF, QD
     Route: 065
  7. SALAZOPIRINA [Concomitant]
     Indication: RHEUMATOID ARTHRITIS
     Dosage: 5 DF, UNK (3 TABLETS IN THE MORNING AND 2 TABLETS IN THE AFTERNOON)
     Route: 065
  8. VENLAFAXIN MYLAN 37,5 MG [Suspect]
     Active Substance: VENLAFAXINE HYDROCHLORIDE
     Indication: DEPRESSION
     Dosage: 1 DF, QD
     Route: 048
  9. ALGIMATE [Concomitant]
     Indication: RHEUMATOID ARTHRITIS
     Dosage: 1 DF, QD
     Route: 065

REACTIONS (5)
  - Dizziness [Not Recovered/Not Resolved]
  - Hyperacusis [Not Recovered/Not Resolved]
  - Migraine [Not Recovered/Not Resolved]
  - Eye movement disorder [Not Recovered/Not Resolved]
  - Drug ineffective [Not Recovered/Not Resolved]
